FAERS Safety Report 7985008-1 (Version None)
Quarter: 2011Q4

REPORT INFORMATION
  Report Type: 
  Country: None (occurrence: None)
  Receive Date: 20111213
  Receipt Date: 20111207
  Transmission Date: 20120403
  Serious: Yes (Death, Life-Threatening, Hospitalization)
  Sender: FDA-Public Use
  Company Number: 2010SP043517

PATIENT
  Age: 73 Year
  Sex: Male
  Weight: 60 kg

DRUGS (9)
  1. FAMOTIDINE [Concomitant]
  2. DILTIAZEM HCL [Concomitant]
  3. EPADEL [Concomitant]
  4. BETAMETHASONE SODIUM PHOSPHATE [Concomitant]
  5. TEMODAL [Suspect]
     Indication: ANAPLASTIC ASTROCYTOMA
     Dosage: 100 MG;QD;PO
     Route: 048
     Dates: start: 20080401, end: 20080512
  6. MOTILIUM [Concomitant]
  7. ZONISAMIDE [Concomitant]
  8. GLUCOBAY [Concomitant]
  9. MOBIC [Concomitant]

REACTIONS (7)
  - DISSEMINATED INTRAVASCULAR COAGULATION [None]
  - PLATELET COUNT DECREASED [None]
  - DEPRESSED LEVEL OF CONSCIOUSNESS [None]
  - FIBRIN D DIMER INCREASED [None]
  - UNEVALUABLE EVENT [None]
  - CEREBRAL INFARCTION [None]
  - PNEUMOCYSTIS JIROVECI PNEUMONIA [None]
